FAERS Safety Report 9955610 (Version 1)
Quarter: 2014Q1

REPORT INFORMATION
  Report Type: Report from Study
  Country: US (occurrence: US)
  Receive Date: 20140304
  Receipt Date: 20140304
  Transmission Date: 20141002
  Serious: Yes (Other)
  Sender: FDA-Public Use
  Company Number: US-ABBVIE-13P-163-1075564-00

PATIENT
  Age: 29 Year
  Sex: Female

DRUGS (3)
  1. HUMIRA [Suspect]
     Indication: COLITIS ULCERATIVE
     Dates: start: 20121123
  2. HUMIRA [Suspect]
     Dates: start: 20130401
  3. LIALDA [Concomitant]
     Indication: COLITIS ULCERATIVE
     Dosage: 2 AT BEDTIME

REACTIONS (2)
  - Abdominal pain [Recovered/Resolved]
  - Gallbladder operation [Recovered/Resolved]
